FAERS Safety Report 6683017-6 (Version None)
Quarter: 2010Q2

REPORT INFORMATION
  Report Type: 
  Country: None (occurrence: None)
  Receive Date: 20100415
  Receipt Date: 20100406
  Transmission Date: 20101027
  Serious: Yes (Hospitalization, Other)
  Sender: FDA-Public Use
  Company Number: US-SANOFI-AVENTIS-200915356US

PATIENT
  Age: 87 Year
  Sex: Female

DRUGS (4)
  1. INSULIN GLARGINE [Suspect]
     Dosage: DOSE AS USED: 20 U IN AM + 28 U IN PM  DOSE:48 UNIT(S)
     Route: 058
     Dates: end: 20100331
  2. HUMULIN R [Concomitant]
     Dosage: DOSE:10 UNIT(S)
  3. HUMALOG [Concomitant]
  4. NOVOLIN 70/30 [Concomitant]

REACTIONS (4)
  - BLOOD GLUCOSE INCREASED [None]
  - DRUG INEFFECTIVE [None]
  - STENT PLACEMENT [None]
  - WEIGHT DECREASED [None]
